FAERS Safety Report 8300699-3 (Version None)
Quarter: 2012Q2

REPORT INFORMATION
  Report Type: 
  Country: None (occurrence: None)
  Receive Date: 20120417
  Receipt Date: 20120409
  Transmission Date: 20120825
  Serious: Yes (Other)
  Sender: FDA-Public Use
  Company Number: 2012SP018948

PATIENT
  Sex: Female

DRUGS (3)
  1. PEG-INTRON [Suspect]
     Indication: HEPATITIS C
     Dates: start: 20120217
  2. RIBAVIRIN [Suspect]
     Indication: HEPATITIS C
     Dates: start: 20120217
  3. VICTRELIS [Suspect]
     Indication: HEPATITIS C
     Dates: start: 20120316

REACTIONS (5)
  - MUSCLE SPASMS [None]
  - VOMITING [None]
  - DIARRHOEA [None]
  - BLOOD POTASSIUM DECREASED [None]
  - DEHYDRATION [None]
